FAERS Safety Report 7043739-4 (Version None)
Quarter: 2010Q4

REPORT INFORMATION
  Report Type: 
  Country: None (occurrence: None)
  Receive Date: 20101013
  Receipt Date: 20100928
  Transmission Date: 20110411
  Serious: Yes (Life-Threatening, Other)
  Sender: FDA-Public Use
  Company Number: GB-PURDUE-GBR-2010-0006825

PATIENT
  Age: 72 Year
  Sex: Female

DRUGS (17)
  1. MS CONTIN [Suspect]
     Indication: PAIN
     Dosage: 20 MG, SINGLE
     Route: 065
     Dates: start: 20100710, end: 20100710
  2. MORPHINE [Suspect]
     Indication: PAIN
     Dosage: 2.5 MG, SINGLE
     Route: 058
     Dates: start: 20100710, end: 20100710
  3. ORAMORPH SR [Suspect]
     Indication: PAIN
     Dosage: UNK
     Route: 065
     Dates: start: 20100710, end: 20100710
  4. TRAMADOL HCL [Suspect]
     Indication: PAIN
     Dosage: 50 MG, PRN
     Route: 048
     Dates: start: 20100710, end: 20100710
  5. ATORVASTATIN [Concomitant]
     Dosage: 20 MG, DAILY
  6. BUMETANIDE [Concomitant]
     Dosage: 5 MG, UNK
  7. FOLIC ACID [Concomitant]
     Dosage: 5 MG, DAILY
  8. GLICLAZIDE [Concomitant]
     Dosage: 10 MG, BID
  9. LISINOPRIL [Concomitant]
     Dosage: 20 MG, UNK
  10. MIRTAZAPINE [Concomitant]
     Dosage: 30 MG, UNK
  11. NOVOMIX                            /01475801/ [Concomitant]
     Dosage: 40 IU, BID
  12. NOVORAPID [Concomitant]
     Dosage: 1 DF, TID
  13. PARACETAMOL [Concomitant]
     Dosage: 2 DF, QID
  14. PRAZOSIN HYDROCHLORIDE [Concomitant]
     Dosage: 1 MG, UNK
  15. EMLA [Concomitant]
     Dosage: UNK
  16. TEARS NATURALE                     /00635701/ [Concomitant]
     Dosage: UNK
  17. VISCOTEARS [Concomitant]
     Dosage: 0.6 ML, PRN

REACTIONS (10)
  - BREATH SOUNDS ABNORMAL [None]
  - C-REACTIVE PROTEIN DECREASED [None]
  - NARCOTIC INTOXICATION [None]
  - PURULENT DISCHARGE [None]
  - RENAL FAILURE CHRONIC [None]
  - RESPIRATORY ACIDOSIS [None]
  - RESPIRATORY ARREST [None]
  - SOMNOLENCE [None]
  - URINE OUTPUT DECREASED [None]
  - WHITE BLOOD CELL COUNT INCREASED [None]
